FAERS Safety Report 8228967-4 (Version None)
Quarter: 2012Q1

REPORT INFORMATION
  Report Type: 
  Country: None (occurrence: None)
  Receive Date: 20120322
  Receipt Date: 20120315
  Transmission Date: 20120608
  Serious: Yes (Other)
  Sender: FDA-Public Use
  Company Number: US-BAYER-2012-003797

PATIENT
  Age: 33 Year
  Sex: Female
  Weight: 68.481 kg

DRUGS (6)
  1. CELEXA [Concomitant]
     Indication: IRRITABLE BOWEL SYNDROME
  2. DICYCLOMINE [Concomitant]
     Indication: IRRITABLE BOWEL SYNDROME
  3. DROSPIRENONE AND ETHINYL ESTRADIOL [Suspect]
     Dosage: UNK
     Dates: start: 20090101, end: 20100601
  4. YAZ [Suspect]
     Dosage: UNK
     Dates: start: 20090101, end: 20100601
  5. FEXOFENADINE [Concomitant]
     Indication: SEASONAL ALLERGY
  6. CRESTOR [Concomitant]

REACTIONS (4)
  - LACUNAR INFARCTION [None]
  - INJURY [None]
  - PAIN [None]
  - EMOTIONAL DISTRESS [None]
